FAERS Safety Report 5042995-1 (Version None)
Quarter: 2006Q2

REPORT INFORMATION
  Report Type: 
  Country: None (occurrence: None)
  Receive Date: 20060627
  Receipt Date: 20060615
  Transmission Date: 20061013
  Serious: Yes (Death, Other)
  Sender: FDA-Public Use
  Company Number: 2006077624

PATIENT
  Age: 45 Year
  Sex: Female

DRUGS (4)
  1. ATARAX [Suspect]
     Dosage: 100 MG (2 IN 1 D), INTRAMUSCULAR
     Route: 030
  2. HYPOCA (BARNIDIPINE) [Suspect]
     Dosage: ORAL
     Route: 048
  3. ZOVIRAX [Concomitant]
  4. SOSEGON (PENTAZOCINE) [Concomitant]

REACTIONS (5)
  - CEREBRAL HAEMORRHAGE [None]
  - CONVULSION [None]
  - DYSPNOEA [None]
  - FEELING ABNORMAL [None]
  - GENERAL PHYSICAL CONDITION ABNORMAL [None]
